FAERS Safety Report 8141282-2 (Version None)
Quarter: 2012Q1

REPORT INFORMATION
  Report Type: 
  Country: None (occurrence: None)
  Receive Date: 20120216
  Receipt Date: 20120209
  Transmission Date: 20120608
  Serious: Yes (Death, Hospitalization)
  Sender: FDA-Public Use
  Company Number: GB-ROCHE-1040202

PATIENT
  Sex: Male

DRUGS (4)
  1. WARFARIN SODIUM [Concomitant]
  2. LUCENTIS [Suspect]
     Indication: AGE-RELATED MACULAR DEGENERATION
     Route: 050
  3. FINASTERIDE [Concomitant]
  4. TAMSULOSIN HCL [Concomitant]

REACTIONS (5)
  - UPPER GASTROINTESTINAL HAEMORRHAGE [None]
  - PULMONARY OEDEMA [None]
  - PNEUMONIA [None]
  - ATRIAL FIBRILLATION [None]
  - LEFT VENTRICULAR FAILURE [None]
